FAERS Safety Report 9304007 (Version 1)
Quarter: 2013Q2

REPORT INFORMATION
  Report Type: Spontaneous
  Country: IT (occurrence: IT)
  Receive Date: 20130522
  Receipt Date: 20130522
  Transmission Date: 20140414
  Serious: Yes (Other)
  Sender: FDA-Public Use
  Company Number: PHHY2013IT050472

PATIENT
  Sex: Male

DRUGS (6)
  1. DOXORUBICIN [Suspect]
     Indication: NON-HODGKIN^S LYMPHOMA
     Dosage: 46 MG, UNK
     Route: 042
     Dates: start: 20130312, end: 20130515
  2. METHOTREXATE [Suspect]
     Indication: NON-HODGKIN^S LYMPHOMA
     Dosage: 2500 MG, UNK
     Route: 042
     Dates: start: 20130312, end: 20130515
  3. VINCRISTINE [Suspect]
     Indication: NON-HODGKIN^S LYMPHOMA
     Dosage: 1 MG, UNK
     Route: 042
     Dates: start: 20130312, end: 20130515
  4. PREDNISONE [Suspect]
     Indication: NON-HODGKIN^S LYMPHOMA
     Dosage: 50 MG, UNK
     Route: 048
     Dates: start: 20130312, end: 20130515
  5. RITUXIMAB [Suspect]
     Indication: NON-HODGKIN^S LYMPHOMA
     Dosage: 683 MG, UNK
     Route: 042
     Dates: start: 20130312, end: 20130515
  6. CYCLOPHOSPHAMIDE [Suspect]
     Indication: NON-HODGKIN^S LYMPHOMA
     Dosage: 910 MG, UNK
     Route: 042
     Dates: start: 20130312, end: 20130515

REACTIONS (1)
  - Neutropenia [Not Recovered/Not Resolved]
